FAERS Safety Report 15917156 (Version 1)
Quarter: 2019Q1

REPORT INFORMATION
  Report Type: Report from Study
  Country: NL (occurrence: NL)
  Receive Date: 20190205
  Receipt Date: 20190205
  Transmission Date: 20190417
  Serious: Yes (Hospitalization, Other)
  Sender: FDA-Public Use
  Company Number: NL-ACCORD-059595

PATIENT
  Age: 67 Year

DRUGS (3)
  1. PREDNISONE. [Suspect]
     Active Substance: PREDNISONE
     Indication: IMMUNOSUPPRESSANT DRUG THERAPY
     Dates: start: 2007
  2. MYCOPHENOLIC ACID. [Suspect]
     Active Substance: MYCOPHENOLIC ACID
     Indication: IMMUNOSUPPRESSANT DRUG THERAPY
     Dates: start: 2007
  3. CICLOSPORIN [Suspect]
     Active Substance: CYCLOSPORINE
     Indication: IMMUNOSUPPRESSANT DRUG THERAPY
     Dates: start: 2007

REACTIONS (7)
  - Meningitis bacterial [Recovered/Resolved with Sequelae]
  - Deafness [Unknown]
  - Escherichia infection [Unknown]
  - Hypoacusis [Not Recovered/Not Resolved]
  - CSF white blood cell count increased [Unknown]
  - CSF protein increased [Unknown]
  - CSF glucose decreased [Unknown]
